FAERS Safety Report 12630608 (Version 2)
Quarter: 2016Q3

REPORT INFORMATION
  Report Type: Spontaneous
  Country: US (occurrence: US)
  Receive Date: 20160808
  Receipt Date: 20160810
  Transmission Date: 20161109
  Serious: No
  Sender: FDA-Public Use
  Company Number: US-CELGENEUS-USA-2016081625

PATIENT
  Sex: Female

DRUGS (3)
  1. POMALYST [Suspect]
     Active Substance: POMALIDOMIDE
     Indication: PLASMA CELL MYELOMA
     Route: 048
     Dates: start: 201405, end: 2015
  2. POMALYST [Suspect]
     Active Substance: POMALIDOMIDE
     Route: 048
     Dates: start: 201604, end: 2016
  3. POMALYST [Suspect]
     Active Substance: POMALIDOMIDE
     Dosage: 3-2MG
     Route: 048
     Dates: start: 201504

REACTIONS (2)
  - Adverse drug reaction [Unknown]
  - Drug effect decreased [Unknown]
